FAERS Safety Report 9894421 (Version 2)
Quarter: 2014Q1

REPORT INFORMATION
  Report Type: Spontaneous
  Country: DE (occurrence: DE)
  Receive Date: 20140213
  Receipt Date: 20140219
  Transmission Date: 20141002
  Serious: Yes (Other)
  Sender: FDA-Public Use
  Company Number: GXKR2014DE000877

PATIENT
  Age: 40 Year
  Sex: Female

DRUGS (1)
  1. VENLAFAXIN 1A PHARMA [Suspect]
     Indication: DEPRESSION
     Dosage: 37.5 MG, ONCE/SINGLE
     Route: 048

REACTIONS (3)
  - Circulatory collapse [Recovered/Resolved]
  - Nausea [Unknown]
  - Vomiting [Unknown]
